FAERS Safety Report 16861989 (Version 1)
Quarter: 2019Q3

REPORT INFORMATION
  Report Type: Spontaneous
  Country: US (occurrence: US)
  Receive Date: 20190927
  Receipt Date: 20190927
  Transmission Date: 20191005
  Serious: No
  Sender: FDA-Public Use
  Company Number: US-009507513-1909USA009311

PATIENT
  Age: 72 Year
  Sex: Male

DRUGS (1)
  1. JANUVIA [Suspect]
     Active Substance: SITAGLIPTIN PHOSPHATE
     Indication: TYPE 2 DIABETES MELLITUS
     Dosage: 50 MILLIGRAM, ONCE
     Route: 048
     Dates: start: 20190922, end: 20190922

REACTIONS (2)
  - Wrong technique in product usage process [Unknown]
  - Blood glucose decreased [Recovering/Resolving]

NARRATIVE: CASE EVENT DATE: 20190922
